FAERS Safety Report 7438586-5 (Version None)
Quarter: 2011Q2

REPORT INFORMATION
  Report Type: 
  Country: None (occurrence: None)
  Receive Date: 20110414
  Receipt Date: 20110406
  Transmission Date: 20111010
  Serious: Yes (Death, Other)
  Sender: FDA-Public Use
  Company Number: CA-145105

PATIENT
  Sex: Male

DRUGS (5)
  1. APO-SULFATRIM [Concomitant]
  2. WINRHO [Suspect]
     Indication: IDIOPATHIC THROMBOCYTOPENIC PURPURA
     Dosage: (INTRAVENOUS)
     Route: 042
     Dates: start: 20050101, end: 20050101
  3. ASPIRIN [Concomitant]
  4. NORVASC [Concomitant]
  5. GAMUNEX [Concomitant]

REACTIONS (5)
  - THROMBOCYTOPENIA [None]
  - COOMBS DIRECT TEST POSITIVE [None]
  - HAEMOLYSIS [None]
  - HAEMOGLOBIN DECREASED [None]
  - EXTRAVASCULAR HAEMOLYSIS [None]
